FAERS Safety Report 7426175 (Version 3)
Quarter: 2013Q3

REPORT INFORMATION
  Report Type: Spontaneous
  Country: US (occurrence: US)
  Receive Date: 20100621
  Receipt Date: 20130701
  Transmission Date: 20140515
  Serious: Yes (Other)
  Sender: FDA-Public Use
  Company Number: US-JNJFOC-20100603724

PATIENT
  Age: 50 Year
  Sex: Female
  Weight: 63.05 kg

DRUGS (7)
  1. REMICADE [Suspect]
     Indication: CROHN^S DISEASE
     Route: 042
     Dates: start: 200907, end: 201004
  2. AZATHIOPRINE [Concomitant]
     Indication: CROHN^S DISEASE
  3. PHENERGAN [Concomitant]
  4. B 12 [Concomitant]
  5. IRON [Concomitant]
     Route: 042
  6. ALIGN PROBIOTIC [Concomitant]
  7. PROCHLORPERAZINE [Concomitant]

REACTIONS (1)
  - Chronic pulmonary histoplasmosis [Not Recovered/Not Resolved]
